FAERS Safety Report 5143560-8 (Version None)
Quarter: 2006Q4

REPORT INFORMATION
  Report Type: 
  Country: None (occurrence: None)
  Receive Date: 20061030
  Receipt Date: 20061017
  Transmission Date: 20070319
  Serious: Yes (Other)
  Sender: FDA-Public Use
  Company Number: CIP06002409

PATIENT
  Age: 80 Year
  Sex: Female

DRUGS (12)
  1. ACTONEL [Suspect]
     Indication: OSTEOPOROSIS
     Dosage: 35 MG ONCE WEEKLY, ORAL
     Route: 048
     Dates: start: 20050105, end: 20060901
  2. CALCIUM (CALCIUM) [Concomitant]
  3. VITAMIN D [Concomitant]
  4. MOBIC [Concomitant]
  5. PAXIL [Concomitant]
  6. FOLIC ACID [Concomitant]
  7. ASCORBIC ACID [Concomitant]
  8. SINGULAIR [Concomitant]
  9. ADVAIR (SALMETEROL XINAFOATE, FLUTICASONE PROPIONATE) INHALER [Concomitant]
  10. ATENOL (ATENOLOL) [Concomitant]
  11. BENICAR [Concomitant]
  12. METAMUCIL (PLANTAGO OVATA HUSK, GLUCOSE MONOHYDRATE) [Concomitant]

REACTIONS (2)
  - OSTEONECROSIS [None]
  - PAIN IN JAW [None]
